FAERS Safety Report 7675579-7 (Version None)
Quarter: 2011Q3

REPORT INFORMATION
  Report Type: 
  Country: None (occurrence: None)
  Receive Date: 20110810
  Receipt Date: 20110808
  Transmission Date: 20111222
  Serious: Yes (Hospitalization)
  Sender: FDA-Public Use
  Company Number: CZ-ABBOTT-11P-217-0844865-00

PATIENT
  Sex: Male

DRUGS (12)
  1. NOVORAPID [Suspect]
     Indication: TYPE 2 DIABETES MELLITUS
     Dates: start: 20110705
  2. CALCIUM ANTAGONIST [Concomitant]
     Indication: PRODUCT USED FOR UNKNOWN INDICATION
  3. FIBRIC ACID [Concomitant]
     Indication: PRODUCT USED FOR UNKNOWN INDICATION
  4. TARKA [Suspect]
     Indication: PRODUCT USED FOR UNKNOWN INDICATION
  5. LANTUS [Suspect]
     Indication: TYPE 2 DIABETES MELLITUS
     Dates: end: 20110705
  6. DIURETICS [Concomitant]
     Indication: PRODUCT USED FOR UNKNOWN INDICATION
  7. STATINS [Concomitant]
     Indication: PRODUCT USED FOR UNKNOWN INDICATION
  8. PLACEBO [Suspect]
     Indication: TYPE 2 DIABETES MELLITUS
     Dates: start: 20100818
  9. SAXAGLIPTIN [Suspect]
     Indication: TYPE 2 DIABETES MELLITUS
     Dates: start: 20100818
  10. GLUCOPHAGE [Suspect]
     Indication: TYPE 2 DIABETES MELLITUS
     Dates: end: 20110705
  11. ACE INHIBITORS [Concomitant]
     Indication: PRODUCT USED FOR UNKNOWN INDICATION
  12. OTHER HYPERTENSION AGENT [Concomitant]
     Indication: PRODUCT USED FOR UNKNOWN INDICATION

REACTIONS (3)
  - GASTROENTERITIS [None]
  - ACUTE PRERENAL FAILURE [None]
  - LACTIC ACIDOSIS [None]
